FAERS Safety Report 18435103 (Version 1)
Quarter: 2020Q4

REPORT INFORMATION
  Report Type: Spontaneous
  Country: FR (occurrence: FR)
  Receive Date: 20201028
  Receipt Date: 20201028
  Transmission Date: 20210114
  Serious: Yes (Death, Hospitalization)
  Sender: FDA-Public Use
  Company Number: GXKR2006FR05997

PATIENT
  Age: 38 Year
  Sex: Female

DRUGS (1)
  1. VANCOMYCIN HYDROCHLORIDE. [Suspect]
     Active Substance: VANCOMYCIN HYDROCHLORIDE
     Indication: INFECTION
     Dosage: UNK
     Route: 065

REACTIONS (10)
  - Septic shock [Fatal]
  - Rash maculo-papular [Fatal]
  - Erythema [Fatal]
  - Pyrexia [Fatal]
  - Toxic epidermal necrolysis [Fatal]
  - Blister [Fatal]
  - Multiple organ dysfunction syndrome [Fatal]
  - Mucosal erosion [Fatal]
  - Odynophagia [Fatal]
  - Nikolsky^s sign [Fatal]
